FAERS Safety Report 8655005 (Version 2)
Quarter: 2013Q2

REPORT INFORMATION
  Report Type: Spontaneous
  Country: ES (occurrence: ES)
  Receive Date: 20120709
  Receipt Date: 20130412
  Transmission Date: 20140414
  Serious: Yes (Other)
  Sender: FDA-Public Use
  Company Number: PHHY2012ES057818

PATIENT
  Age: 26 Year
  Sex: Male

DRUGS (7)
  1. AZATHIOPRINE [Suspect]
     Indication: CROHN^S DISEASE
     Dosage: 150 MG, PER DAY
     Dates: start: 200206
  2. AZATHIOPRINE [Suspect]
     Dosage: 50 MG, PER DAY
  3. AZATHIOPRINE [Suspect]
     Dosage: 150 MG, PER DAY
     Dates: start: 200501
  4. PREDNISONE [Suspect]
     Indication: CROHN^S DISEASE
     Dosage: 45 MG, PER DAY
     Dates: start: 2002
  5. PREDNISONE [Suspect]
     Dosage: 50 MG, PER DAY
     Dates: start: 2002
  6. MESALAZINE [Concomitant]
     Dosage: 2.4 G, PER DAY
  7. COTRIMOXAZOLE [Concomitant]
     Indication: ANTIFUNGAL PROPHYLAXIS

REACTIONS (2)
  - Lymphopenia [Recovered/Resolved]
  - Weight decreased [Recovered/Resolved]
